FAERS Safety Report 18396837 (Version 1)
Quarter: 2020Q4

REPORT INFORMATION
  Report Type: Spontaneous
  Country: US (occurrence: US)
  Receive Date: 20201019
  Receipt Date: 20201019
  Transmission Date: 20210114
  Serious: Yes (Other)
  Sender: FDA-Public Use
  Company Number: US-LUPIN PHARMACEUTICALS INC.-2020-07545

PATIENT
  Age: 61 Year
  Sex: Male

DRUGS (11)
  1. LORAZEPAM. [Suspect]
     Active Substance: LORAZEPAM
     Indication: STATUS EPILEPTICUS
     Dosage: UNK
     Route: 065
  2. PERAMPANEL [Suspect]
     Active Substance: PERAMPANEL
     Indication: STATUS EPILEPTICUS
     Dosage: UNK
     Route: 065
  3. BRIVARACETAM [Suspect]
     Active Substance: BRIVARACETAM
     Indication: STATUS EPILEPTICUS
     Dosage: UNK
     Route: 065
  4. PROPOFOL. [Suspect]
     Active Substance: PROPOFOL
     Indication: STATUS EPILEPTICUS
     Dosage: UNK (SEDATIVE INFUSION)
     Route: 065
  5. PHENYTOIN SODIUM. [Suspect]
     Active Substance: PHENYTOIN SODIUM
     Indication: STATUS EPILEPTICUS
     Dosage: UNK
     Route: 065
  6. PENTOBARBITAL. [Suspect]
     Active Substance: PENTOBARBITAL
     Indication: EPILEPSY
     Dosage: UNK (INFUSION)
     Route: 065
  7. LACOSAMIDE. [Suspect]
     Active Substance: LACOSAMIDE
     Indication: STATUS EPILEPTICUS
     Dosage: UNK
     Route: 065
  8. LEVETIRACETAM. [Suspect]
     Active Substance: LEVETIRACETAM
     Indication: STATUS EPILEPTICUS
     Dosage: UNK
     Route: 065
  9. MIDAZOLAM. [Suspect]
     Active Substance: MIDAZOLAM
     Indication: STATUS EPILEPTICUS
     Dosage: UNK (SEDATIVE INFUSION)
     Route: 065
  10. PENTOBARBITAL. [Suspect]
     Active Substance: PENTOBARBITAL
     Indication: STATUS EPILEPTICUS
  11. VALPROIC ACID. [Suspect]
     Active Substance: VALPROIC ACID
     Indication: STATUS EPILEPTICUS
     Dosage: UNK
     Route: 065

REACTIONS (1)
  - Drug resistance [Unknown]
